FAERS Safety Report 8960920 (Version 1)
Quarter: 2012Q4

REPORT INFORMATION
  Report Type: Spontaneous
  Country: US (occurrence: None)
  Receive Date: 20121211
  Receipt Date: 20121211
  Transmission Date: 20130627
  Serious: Yes (Other)
  Sender: FDA-Public Use
  Company Number: None

PATIENT
  Sex: Female
  Weight: 102.51 kg

DRUGS (3)
  1. MONTELUKAST 10MG MYLAN [Suspect]
     Route: 048
     Dates: start: 20121027, end: 20121130
  2. ADVAIR [Concomitant]
  3. PROAIR HFA INHALER [Concomitant]

REACTIONS (4)
  - Dyspnoea [None]
  - Chest discomfort [None]
  - Cough [None]
  - Dysphonia [None]
